FAERS Safety Report 4726823-7 (Version None)
Quarter: 2005Q3

REPORT INFORMATION
  Report Type: 
  Country: None (occurrence: None)
  Receive Date: 20050725
  Receipt Date: 20050318
  Transmission Date: 20060218
  Serious: No
  Sender: FDA-Public Use
  Company Number: USA050393614

PATIENT
  Age: 8 Year
  Sex: Male
  Weight: 40 kg

DRUGS (1)
  1. STRATTERA [Suspect]
     Indication: ATTENTION DEFICIT/HYPERACTIVITY DISORDER
     Dosage: 60 MG
     Dates: start: 20020101

REACTIONS (6)
  - ABNORMAL BEHAVIOUR [None]
  - AFFECT LABILITY [None]
  - CRYING [None]
  - DRUG INEFFECTIVE [None]
  - VOMITING [None]
  - WEIGHT DECREASED [None]
